FAERS Safety Report 6143158-9 (Version None)
Quarter: 2009Q2

REPORT INFORMATION
  Report Type: 
  Country: None (occurrence: None)
  Receive Date: 20090403
  Receipt Date: 20090225
  Transmission Date: 20091009
  Serious: Yes (Disabling, Other)
  Sender: FDA-Public Use
  Company Number: AU-NOVOPROD-284980

PATIENT
  Sex: Female

DRUGS (1)
  1. NOVORAPID PENFILL [Suspect]
     Indication: DRUG USE FOR UNKNOWN INDICATION

REACTIONS (4)
  - BLOOD GLUCOSE INCREASED [None]
  - DEVICE BREAKAGE [None]
  - INCORRECT DOSE ADMINISTERED [None]
  - VISUAL ACUITY REDUCED [None]
